FAERS Safety Report 12796199 (Version 1)
Quarter: 2016Q3

REPORT INFORMATION
  Report Type: Spontaneous
  Country: US (occurrence: US)
  Receive Date: 20160929
  Receipt Date: 20160929
  Transmission Date: 20161109
  Serious: No
  Sender: FDA-Public Use
  Company Number: US-INCYTE CORPORATION-2016IN001260

PATIENT
  Age: 68 Year
  Sex: Female
  Weight: 80.27 kg

DRUGS (2)
  1. JAKAFI [Suspect]
     Active Substance: RUXOLITINIB
     Indication: POLYCYTHAEMIA
     Dosage: 20 MG, QD
     Route: 048
     Dates: start: 20151118
  2. JAKAFI [Suspect]
     Active Substance: RUXOLITINIB
     Dosage: 20 MG EVERY OTHER DAY ALTERNATING WITH 10 MG (1/2 20 MG PILLS) EVERY OTHER DAY
     Route: 048
     Dates: start: 20160318

REACTIONS (3)
  - Dyspnoea [Unknown]
  - Wrong technique in product usage process [Unknown]
  - Skin lesion [Unknown]

NARRATIVE: CASE EVENT DATE: 20160304
